FAERS Safety Report 4318976-X (Version None)
Quarter: 2004Q1

REPORT INFORMATION
  Report Type: 
  Country: None (occurrence: None)
  Receive Date: 20040316
  Receipt Date: 20040302
  Transmission Date: 20041129
  Serious: Yes (Death)
  Sender: FDA-Public Use
  Company Number: 2003-BP-07183PF

PATIENT
  Age: 66 Year
  Sex: Male

DRUGS (5)
  1. SPIRIVA [Suspect]
     Dosage: 18 MCG (18 MCG, 18 MCG DAILY), IH
     Route: 055
  2. VERAPAMIL [Concomitant]
  3. APROVEL [Concomitant]
  4. TEOPHYLINE [Concomitant]
  5. BERODUAL  (DUOVENT) [Concomitant]

REACTIONS (4)
  - FATIGUE [None]
  - MEDICATION ERROR [None]
  - MOTION SICKNESS [None]
  - RESPIRATORY ARREST [None]
